FAERS Safety Report 7496399-2 (Version None)
Quarter: 2011Q2

REPORT INFORMATION
  Report Type: 
  Country: None (occurrence: None)
  Receive Date: 20110513
  Receipt Date: 20110505
  Transmission Date: 20111010
  Serious: Yes (Hospitalization)
  Sender: FDA-Public Use
  Company Number: 2011SP020562

PATIENT
  Age: 37 Year
  Sex: Male

DRUGS (2)
  1. LITHIUM CARBONATE [Concomitant]
  2. SAPHRIS [Suspect]
     Indication: BIPOLAR DISORDER
     Dosage: 5MG;QD;SL, 5MG;BID;SL,5MG;OD;SL
     Route: 060
     Dates: start: 20110201

REACTIONS (3)
  - VISION BLURRED [None]
  - KETOACIDOSIS [None]
  - DIABETES MELLITUS [None]
